FAERS Safety Report 15609928 (Version 2)
Quarter: 2018Q4

REPORT INFORMATION
  Report Type: Report from Study
  Country: JP (occurrence: JP)
  Receive Date: 20181113
  Receipt Date: 20181226
  Transmission Date: 20190205
  Serious: Yes (Life-Threatening, Hospitalization, Other)
  Sender: FDA-Public Use
  Company Number: JP-ALXN-A201814456AA

PATIENT
  Age: 1 Year
  Sex: Female
  Weight: 6.16 kg

DRUGS (20)
  1. ALDACTONE A [Concomitant]
     Active Substance: SPIRONOLACTONE
     Indication: PRODUCT USED FOR UNKNOWN INDICATION
     Dosage: 1 MG, BID
     Route: 048
     Dates: end: 20171210
  2. CEFOTAXIME SODIUM [Concomitant]
     Active Substance: CEFOTAXIME SODIUM
     Indication: PRODUCT USED FOR UNKNOWN INDICATION
     Dosage: 300 MG, TID
     Route: 042
     Dates: start: 20180223, end: 20180227
  3. ALDACTONE A [Concomitant]
     Active Substance: SPIRONOLACTONE
     Dosage: 5 MG, TID
     Route: 048
     Dates: end: 20180810
  4. INCREMIN                           /00023544/ [Concomitant]
     Indication: PRODUCT USED FOR UNKNOWN INDICATION
     Dosage: 3 ML, BID
     Route: 048
     Dates: end: 20180810
  5. STRENSIQ [Suspect]
     Active Substance: ASFOTASE ALFA
     Dosage: 1.6 MG/KG, QD
     Dates: start: 20171115, end: 20171127
  6. POLAPREZINC [Concomitant]
     Active Substance: POLAPREZINC
     Indication: PRODUCT USED FOR UNKNOWN INDICATION
     Dosage: 5 MG, QD
     Route: 048
     Dates: end: 20171219
  7. CERCINE [Concomitant]
     Active Substance: DIAZEPAM
     Indication: PRODUCT USED FOR UNKNOWN INDICATION
     Dosage: 1.5 MG, QID
     Route: 048
     Dates: end: 20180810
  8. PULMICORT TURBUHALER [Concomitant]
     Active Substance: BUDESONIDE
     Indication: PRODUCT USED FOR UNKNOWN INDICATION
     Dosage: 0.25 MG, BID
     Dates: start: 20180810, end: 20180824
  9. STRENSIQ [Suspect]
     Active Substance: ASFOTASE ALFA
     Dosage: 3 MG/KG, TIW
     Route: 042
     Dates: start: 20171129
  10. FUROSEMIDE. [Concomitant]
     Active Substance: FUROSEMIDE
     Dosage: 5 MG, TID
     Route: 048
     Dates: end: 20180810
  11. ASPARA K [Concomitant]
     Active Substance: POTASSIUM ASPARTATE
     Indication: PRODUCT USED FOR UNKNOWN INDICATION
     Dosage: 2 G, TID
     Route: 048
     Dates: end: 20180810
  12. BIOFERMIN                          /01617201/ [Concomitant]
     Active Substance: BACILLUS SUBTILIS\LACTOBACILLUS ACIDOPHILUS\STREPTOCOCCUS FAECAIS
     Indication: PRODUCT USED FOR UNKNOWN INDICATION
     Dosage: 0.5 G, TID
     Route: 048
     Dates: end: 20180810
  13. FUROSEMIDE. [Concomitant]
     Active Substance: FUROSEMIDE
     Indication: PRODUCT USED FOR UNKNOWN INDICATION
     Dosage: 1 MG, BID
     Route: 048
     Dates: end: 20171210
  14. REVATIO [Concomitant]
     Active Substance: SILDENAFIL CITRATE
     Indication: PRODUCT USED FOR UNKNOWN INDICATION
     Dosage: 25 MG, BID
     Route: 048
     Dates: end: 20171210
  15. CEFOTAXIME SODIUM [Concomitant]
     Active Substance: CEFOTAXIME SODIUM
     Dosage: 500 MG, TID
     Route: 042
     Dates: start: 20180713, end: 2018
  16. MIDAZOLAM [Concomitant]
     Active Substance: MIDAZOLAM HYDROCHLORIDE
     Indication: PRODUCT USED FOR UNKNOWN INDICATION
     Dosage: 0.75 MG, SINGLE
     Route: 042
     Dates: start: 20180529, end: 20180529
  17. KETALAR [Concomitant]
     Active Substance: KETAMINE HYDROCHLORIDE
     Indication: PRODUCT USED FOR UNKNOWN INDICATION
     Dosage: 8 MG, SINGLE
     Route: 042
     Dates: start: 20180529, end: 20180529
  18. KETALAR [Concomitant]
     Active Substance: KETAMINE HYDROCHLORIDE
     Dosage: 8 MG, BID
     Route: 042
     Dates: start: 20180530, end: 20180530
  19. KETALAR [Concomitant]
     Active Substance: KETAMINE HYDROCHLORIDE
     Dosage: UNK
  20. STRENSIQ [Suspect]
     Active Substance: ASFOTASE ALFA
     Indication: HYPOPHOSPHATASIA
     Dosage: 2 MG/KG, TIW
     Route: 042
     Dates: start: 20151126, end: 20171114

REACTIONS (5)
  - Respiratory failure [Recovered/Resolved]
  - Neonatal respiratory distress syndrome [Recovered/Resolved]
  - Hypercalcaemia [Recovered/Resolved]
  - Vomiting [Not Recovered/Not Resolved]
  - Drug ineffective [Unknown]

NARRATIVE: CASE EVENT DATE: 201709
